FAERS Safety Report 20750369 (Version 1)
Quarter: 2022Q2

REPORT INFORMATION
  Report Type: Spontaneous
  Country: US (occurrence: US)
  Receive Date: 20220426
  Receipt Date: 20220426
  Transmission Date: 20220721
  Serious: Yes (Other)
  Sender: FDA-Public Use
  Company Number: US-PFIZER INC-202200480463

PATIENT
  Age: 23 Year
  Sex: Male
  Weight: 81.65 kg

DRUGS (2)
  1. VIAGRA [Suspect]
     Active Substance: SILDENAFIL CITRATE
     Dosage: 150 MG, 2X/DAY
  2. VIAGRA [Suspect]
     Active Substance: SILDENAFIL CITRATE
     Dosage: 150 MG, 3X/DAY

REACTIONS (3)
  - Penile pain [Not Recovered/Not Resolved]
  - Penis disorder [Not Recovered/Not Resolved]
  - Off label use [Unknown]
